FAERS Safety Report 5981456-X (Version None)
Quarter: 2008Q4

REPORT INFORMATION
  Report Type: 
  Country: None (occurrence: None)
  Receive Date: 20081128
  Receipt Date: 20081110
  Transmission Date: 20090506
  Serious: Yes (Hospitalization)
  Sender: FDA-Public Use
  Company Number: DSA_32470_2008

PATIENT
  Sex: Female

DRUGS (5)
  1. LORAZEPAM [Suspect]
     Dosage: 25 MG 1X, NOT THE PRESCRIBED AMOUNT ORAL)
     Route: 048
     Dates: start: 20080925, end: 20080925
  2. SEROQUEL [Suspect]
     Indication: DRUG USE FOR UNKNOWN INDICATION
     Dosage: (ORAL)
     Route: 048
  3. TEGRETOL [Suspect]
     Indication: DRUG USE FOR UNKNOWN INDICATION
     Dosage: (400 MG, ORAL)
     Route: 048
  4. VENLAFAXINE HYDROCHLORIDE [Suspect]
     Indication: DRUG USE FOR UNKNOWN INDICATION
     Dosage: (37.5 MG, ORAL
     Route: 048
  5. ALCOHOL (ALCOHOL ETHANOL) [Suspect]
     Indication: DRUG USE FOR UNKNOWN INDICATION
     Dosage: (OVEDOSE , ORAL)
     Route: 048
     Dates: start: 20080925, end: 20080925

REACTIONS (7)
  - ALCOHOL USE [None]
  - BRADYCARDIA [None]
  - DYSARTHRIA [None]
  - HEART RATE DECREASED [None]
  - INTENTIONAL OVERDOSE [None]
  - SOMNOLENCE [None]
  - SUICIDE ATTEMPT [None]
